FAERS Safety Report 6305038-5 (Version None)
Quarter: 2009Q3

REPORT INFORMATION
  Report Type: 
  Country: None (occurrence: None)
  Receive Date: 20090811
  Receipt Date: 20090730
  Transmission Date: 20100115
  Serious: Yes (Other)
  Sender: FDA-Public Use
  Company Number: ES-GENENTECH-288168

PATIENT
  Age: 74 Year
  Sex: Male

DRUGS (1)
  1. LUCENTIS [Suspect]
     Indication: CHOROIDAL NEOVASCULARISATION
     Dosage: UNK

REACTIONS (2)
  - CHOROIDAL NEOVASCULARISATION [None]
  - VISUAL ACUITY REDUCED [None]
